FAERS Safety Report 4746384-6 (Version None)
Quarter: 2005Q3

REPORT INFORMATION
  Report Type: 
  Country: None (occurrence: None)
  Receive Date: 20050816
  Receipt Date: 20050816
  Transmission Date: 20060218
  Serious: Yes (Life-Threatening, Disabling, Other)
  Sender: FDA-Public Use
  Company Number: None

PATIENT
  Age: 55 Year
  Sex: Female
  Weight: 61.2356 kg

DRUGS (3)
  1. BEXTRA [Suspect]
     Indication: INJURY
     Dosage: ONE TABLET 4X DAY ORAL
     Route: 048
  2. BEXTRA [Suspect]
     Indication: OEDEMA PERIPHERAL
     Dosage: ONE TABLET 4X DAY ORAL
     Route: 048
  3. VIOXX [Suspect]
     Indication: ARTHRALGIA
     Dosage: ONE TABLET 2XDAY ORAL
     Route: 048

REACTIONS (11)
  - BLISTER [None]
  - COUGH [None]
  - MYALGIA [None]
  - NEURALGIA [None]
  - PAIN [None]
  - PHARYNGOLARYNGEAL PAIN [None]
  - PYREXIA [None]
  - RASH [None]
  - SCAR [None]
  - SKIN EXFOLIATION [None]
  - SOCIAL AVOIDANT BEHAVIOUR [None]
